FAERS Safety Report 5891540-7 (Version None)
Quarter: 2008Q3

REPORT INFORMATION
  Report Type: 
  Country: None (occurrence: None)
  Receive Date: 20080922
  Receipt Date: 20080910
  Transmission Date: 20090109
  Serious: Yes (Other)
  Sender: FDA-Public Use
  Company Number: CA-ROCHE-585825

PATIENT
  Sex: Male

DRUGS (2)
  1. PEGASYS [Suspect]
     Indication: HEPATITIS C
     Dosage: STOP DATE: SEPTEMBER 2008.
     Route: 058
     Dates: start: 20080729
  2. RIBAVIRIN [Suspect]
     Indication: HEPATITIS C
     Dosage: STOP DATE: SEPTEMBER 2008
     Route: 048
     Dates: start: 20080729

REACTIONS (1)
  - ABORTION SPONTANEOUS [None]
